FAERS Safety Report 25348791 (Version 3)
Quarter: 2025Q3

REPORT INFORMATION
  Report Type: Spontaneous
  Country: US (occurrence: US)
  Receive Date: 20250522
  Receipt Date: 20250717
  Transmission Date: 20251020
  Serious: Yes (Death, Hospitalization)
  Sender: SAREPTA THERAPEUTICS
  Company Number: US-SAREPTA THERAPEUTICS INC.-SRP2025-006006

PATIENT
  Age: 24 Year
  Sex: Male

DRUGS (1)
  1. ELEVIDYS [Suspect]
     Active Substance: DELANDISTROGENE MOXEPARVOVEC-ROKL
     Indication: Duchenne muscular dystrophy
     Dates: start: 20250409, end: 20250409

REACTIONS (12)
  - Pneumothorax [Fatal]
  - Cardiac arrest [Not Recovered/Not Resolved]
  - Respiratory arrest [Not Recovered/Not Resolved]
  - Pneumonia bacterial [Unknown]
  - Infectious pleural effusion [Unknown]
  - Chest pain [Unknown]
  - Hypoxia [Unknown]
  - Hypercapnia [Unknown]
  - Laryngitis [Unknown]
  - Cough [Not Recovered/Not Resolved]
  - Fatigue [Unknown]
  - Nasopharyngitis [Unknown]

NARRATIVE: CASE EVENT DATE: 20250505
